FAERS Safety Report 26203906 (Version 1)
Quarter: 2025Q4

REPORT INFORMATION
  Report Type: Spontaneous
  Country: US (occurrence: US)
  Receive Date: 20251226
  Receipt Date: 20251226
  Transmission Date: 20260118
  Serious: No
  Sender: INCYTE
  Company Number: US-EVENT-005298

PATIENT
  Age: 4 Year

DRUGS (2)
  1. JAKAFI [Suspect]
     Active Substance: RUXOLITINIB
     Indication: Thrombotic microangiopathy
     Dosage: 2.5 MG TWICE DAILY
     Route: 065
  2. SOLIRIS [Concomitant]
     Active Substance: ECULIZUMAB
     Indication: Product used for unknown indication
     Dosage: UNK
     Route: 065

REACTIONS (2)
  - Off label use [Unknown]
  - Wrong technique in product usage process [Unknown]
